FAERS Safety Report 9602925 (Version 2)
Quarter: 2014Q1

REPORT INFORMATION
  Report Type: Spontaneous
  Country: CA (occurrence: CA)
  Receive Date: 20131007
  Receipt Date: 20140207
  Transmission Date: 20141002
  Serious: Yes (Other)
  Sender: FDA-Public Use
  Company Number: CA-JNJFOC-20131002905

PATIENT
  Sex: Male
  Weight: 48 kg

DRUGS (4)
  1. REMICADE [Suspect]
     Indication: CROHN^S DISEASE
     Dosage: RECEIVED 18 DOSES OF INFLIXIMAB INFUSIONS
     Route: 042
  2. REMICADE [Suspect]
     Indication: CROHN^S DISEASE
     Dosage: RECEIVED 18 DOSES OF INFLIXIMAB INFUSIONS
     Route: 042
  3. METHOTREXATE [Suspect]
     Indication: CROHN^S DISEASE
     Route: 048
     Dates: start: 201204
  4. PURINETHOL [Suspect]
     Indication: PRODUCT USED FOR UNKNOWN INDICATION
     Route: 065

REACTIONS (2)
  - Pancreatitis [Unknown]
  - Hodgkin^s disease [Unknown]
